FAERS Safety Report 9530345 (Version 1)
Quarter: 2013Q3

REPORT INFORMATION
  Report Type: Spontaneous
  Country: JP (occurrence: JP)
  Receive Date: 20130917
  Receipt Date: 20130917
  Transmission Date: 20140515
  Serious: Yes (Other)
  Sender: FDA-Public Use
  Company Number: JP-MYLANLABS-2013S1020321

PATIENT
  Age: 6 Decade
  Sex: Female

DRUGS (4)
  1. CARBOPLATIN [Suspect]
     Indication: UTERINE CANCER
     Dosage: 700MG
     Route: 065
  2. CARBOPLATIN [Suspect]
     Indication: OVARIAN CANCER
     Dosage: 700MG
     Route: 065
  3. PACLITAXEL [Suspect]
     Indication: UTERINE CANCER
     Route: 065
  4. PACLITAXEL [Suspect]
     Indication: OVARIAN CANCER
     Route: 065

REACTIONS (1)
  - Posterior reversible encephalopathy syndrome [Unknown]
